FAERS Safety Report 6762953-6 (Version None)
Quarter: 2010Q2

REPORT INFORMATION
  Report Type: 
  Country: None (occurrence: None)
  Receive Date: 20100609
  Receipt Date: 20100528
  Transmission Date: 20101027
  Serious: Yes (Hospitalization, Other)
  Sender: FDA-Public Use
  Company Number: US-PFIZER INC-2010036734

PATIENT
  Sex: Male
  Weight: 131 kg

DRUGS (8)
  1. TIKOSYN [Suspect]
     Indication: ATRIAL FIBRILLATION
     Dosage: 500 UG, 2X/DAY
     Dates: start: 20100202, end: 20100207
  2. LOPID [Suspect]
  3. WARFARIN [Concomitant]
  4. GLIPIZIDE [Concomitant]
     Dosage: 10 MG, 2X/DAY
  5. METOPROLOL [Concomitant]
     Dosage: 50 MG, 1X/DAY
  6. DIGOXIN [Concomitant]
     Dosage: 0.25 MG, 1X/DAY
  7. COZAAR [Concomitant]
     Dosage: 50 MG, 1X/DAY
  8. MILK THISTLE [Concomitant]
     Dosage: 1000 MG, 1X/DAY

REACTIONS (5)
  - BLOOD CREATINE PHOSPHOKINASE INCREASED [None]
  - DEVICE MALFUNCTION [None]
  - HYPOTONIA [None]
  - SYNCOPE [None]
  - VENTRICULAR TACHYCARDIA [None]
